FAERS Safety Report 10178723 (Version 1)
Quarter: 2014Q2

REPORT INFORMATION
  Report Type: Spontaneous
  Country: US (occurrence: US)
  Receive Date: 20140519
  Receipt Date: 20140519
  Transmission Date: 20141212
  Serious: Yes (Death)
  Sender: FDA-Public Use
  Company Number: US-BIOGENIDEC-2014BI045945

PATIENT
  Age: 56 Year
  Sex: Female

DRUGS (4)
  1. AVONEX [Suspect]
     Indication: MULTIPLE SCLEROSIS
     Route: 030
     Dates: start: 20080124
  2. MECLIZINE HCL [Concomitant]
  3. DETROL LA [Concomitant]
  4. ALENDRONATE SODIUM [Concomitant]

REACTIONS (1)
  - Death [Fatal]
